FAERS Safety Report 6982642-2 (Version None)
Quarter: 2010Q3

REPORT INFORMATION
  Report Type: 
  Country: None (occurrence: None)
  Receive Date: 20100909
  Receipt Date: 20100903
  Transmission Date: 20110219
  Serious: Yes (Hospitalization, Other)
  Sender: FDA-Public Use
  Company Number: 20109098

PATIENT
  Sex: Female

DRUGS (4)
  1. LIORESAL [Suspect]
     Indication: MUSCLE SPASTICITY
     Dosage: 30 MG ORAL (1 MG/DAY); 450 MG;
     Route: 048
  2. MORPHINE [Concomitant]
  3. BUPIVACAINE HCL [Concomitant]
  4. CLONIDINE [Concomitant]

REACTIONS (3)
  - OVERDOSE [None]
  - RESPIRATORY DEPRESSION [None]
  - UNRESPONSIVE TO STIMULI [None]
